FAERS Safety Report 4523335-0 (Version None)
Quarter: 2004Q4

REPORT INFORMATION
  Report Type: 
  Country: None (occurrence: None)
  Receive Date: 20041209
  Receipt Date: 20041209
  Transmission Date: 20050328
  Serious: Yes (Hospitalization, Other)
  Sender: FDA-Public Use
  Company Number: None

PATIENT
  Age: 43 Year
  Sex: Female
  Weight: 72.5755 kg

DRUGS (1)
  1. EFFEXOR XR [Suspect]
     Indication: DEPRESSION
     Dosage: ONCE DAILY   ORAL
     Route: 048
     Dates: start: 20031001, end: 20041123

REACTIONS (7)
  - ABNORMAL DREAMS [None]
  - DRUG WITHDRAWAL SYNDROME [None]
  - HYPERTENSION [None]
  - MOOD SWINGS [None]
  - NIGHT SWEATS [None]
  - PHOTOSENSITIVITY REACTION [None]
  - SOMNOLENCE [None]
